FAERS Safety Report 7656276-0 (Version None)
Quarter: 2011Q3

REPORT INFORMATION
  Report Type: 
  Country: None (occurrence: None)
  Receive Date: 20110804
  Receipt Date: 20110727
  Transmission Date: 20111222
  Serious: Yes (Other)
  Sender: FDA-Public Use
  Company Number: SI-MPIJNJ-2011-03317

PATIENT

DRUGS (6)
  1. VELCADE [Suspect]
     Indication: MULTIPLE MYELOMA
     Dosage: UNK MG, UNK
     Route: 042
     Dates: start: 20090526
  2. DEXAMETHASONE [Concomitant]
     Dosage: 20 MG, UNK
     Route: 042
  3. VELCADE [Suspect]
     Dosage: 2.2 MG, UNK
     Route: 042
     Dates: start: 20110718
  4. VELCADE [Suspect]
     Dosage: 1.6 MG, UNK
     Route: 042
     Dates: start: 20110725
  5. SOLU-CORTEF [Concomitant]
     Dosage: 200 MG, UNK
  6. KYTRIL [Concomitant]
     Dosage: 3 MG, UNK

REACTIONS (2)
  - ERYTHEMA [None]
  - SKIN WARM [None]
